FAERS Safety Report 7961294-9 (Version None)
Quarter: 2011Q4

REPORT INFORMATION
  Report Type: 
  Country: None (occurrence: None)
  Receive Date: 20111207
  Receipt Date: 20111128
  Transmission Date: 20120403
  Serious: Yes (Hospitalization)
  Sender: FDA-Public Use
  Company Number: BR-US-EMD SERONO, INC.-7098747

PATIENT
  Sex: Female

DRUGS (2)
  1. REBIF [Suspect]
     Indication: RELAPSING-REMITTING MULTIPLE SCLEROSIS
     Dates: start: 20050708
  2. LOSARTAN POTASSIUM [Concomitant]

REACTIONS (3)
  - CENTRAL NERVOUS SYSTEM LESION [None]
  - INFLUENZA LIKE ILLNESS [None]
  - MUSCULAR WEAKNESS [None]
